FAERS Safety Report 7550477 (Version 2)
Quarter: 2012Q4

REPORT INFORMATION
  Report Type: 
  Country: GB (occurrence: GB)
  Receive Date: 20100823
  Receipt Date: 20120828
  Transmission Date: 20130627
  Serious: Yes (Death)
  Sender: FDA-Public Use
  Company Number: GB-CUBIST-2010S1001216

PATIENT
  Age: 61 Year
  Sex: Male

DRUGS (7)
  1. CUBICIN [Suspect]
     Indication: ENDOCARDITIS
  2. CUBICIN [Suspect]
     Indication: STAPHYLOCOCCAL INFECTION
  3. CUBICIN [Suspect]
     Indication: TREATMENT FAILURE
  4. FLUCLOXACILLIN [Concomitant]
     Indication: ENDOCARDITIS
  5. GENTAMICIN [Concomitant]
     Indication: ENDOCARDITIS
  6. RIFAMPICIN [Concomitant]
     Indication: ENDOCARDITIS
  7. LINEZOLID [Concomitant]
     Indication: ENDOCARDITIS

REACTIONS (1)
  - Death [Fatal]
